FAERS Safety Report 11790792 (Version 1)
Quarter: 2015Q4

REPORT INFORMATION
  Report Type: Spontaneous
  Country: US (occurrence: US)
  Receive Date: 20151201
  Receipt Date: 20151201
  Transmission Date: 20160305
  Serious: No
  Sender: FDA-Public Use
  Company Number: US-SA-2014SA155744

PATIENT

DRUGS (1)
  1. RENVELA [Suspect]
     Active Substance: SEVELAMER CARBONATE
     Dosage: RENVELA TAB 800 MG/ 1 WITH EACH MEAL, 1 WITH SNACKS
     Route: 048

REACTIONS (1)
  - Dyspepsia [Not Recovered/Not Resolved]
